FAERS Safety Report 23391823 (Version 4)
Quarter: 2024Q1

REPORT INFORMATION
  Report Type: Spontaneous
  Country: US (occurrence: US)
  Receive Date: 20240111
  Receipt Date: 20240223
  Transmission Date: 20240410
  Serious: Yes (Other)
  Sender: FDA-Public Use
  Company Number: US-MYLANLABS-2024M1002815

PATIENT
  Sex: Female
  Weight: 89.8 kg

DRUGS (1)
  1. XULANE [Suspect]
     Active Substance: ETHINYL ESTRADIOL\NORELGESTROMIN
     Indication: Product used for unknown indication
     Dosage: UNK
     Route: 062

REACTIONS (8)
  - Disability [Unknown]
  - Illness [Unknown]
  - Pain [Unknown]
  - Drug ineffective [Unknown]
  - Product adhesion issue [Unknown]
  - Heavy menstrual bleeding [Unknown]
  - Abdominal pain upper [Unknown]
  - Generalised oedema [Recovered/Resolved]
